FAERS Safety Report 5224330-9 (Version None)
Quarter: 2007Q1

REPORT INFORMATION
  Report Type: 
  Country: None (occurrence: None)
  Receive Date: 20070130
  Receipt Date: 20070122
  Transmission Date: 20070707
  Serious: Yes (Hospitalization, Disabling)
  Sender: FDA-Public Use
  Company Number: BE-BOEHRINGER INGELHEIM PHARMACEUTICALS, INC.-2007-BP-00977YA

PATIENT
  Sex: Male

DRUGS (8)
  1. TAMSULOSIN HCL [Suspect]
     Indication: BENIGN PROSTATIC HYPERPLASIA
     Route: 048
     Dates: start: 20040714
  2. DUTASTERIDE [Suspect]
     Indication: BENIGN PROSTATIC HYPERPLASIA
     Route: 048
     Dates: start: 20040714
  3. PROPRANOLOL [Concomitant]
     Route: 065
     Dates: start: 19980101
  4. DEANXIT [Concomitant]
     Route: 065
     Dates: start: 20030101
  5. CITALOPRAM HYDROBROMIDE [Concomitant]
     Route: 065
     Dates: start: 20030101
  6. AMITRIPTYLINE HYDROCHLORIDE [Concomitant]
     Route: 065
     Dates: start: 20030101
  7. VENLAFAXINE HYDROCHLORIDE [Concomitant]
     Route: 065
     Dates: start: 20030101
  8. BETAHISTINE HYDROCHLORIDE [Concomitant]
     Route: 065
     Dates: start: 20030101

REACTIONS (2)
  - CALCULUS URETERIC [None]
  - RENAL MASS [None]
